FAERS Safety Report 11292275 (Version 2)
Quarter: 2015Q3

REPORT INFORMATION
  Report Type: Report from Study
  Country: US (occurrence: US)
  Receive Date: 20150722
  Receipt Date: 20150827
  Transmission Date: 20151125
  Serious: No
  Sender: FDA-Public Use
  Company Number: US-ACTELION-A-NJ2015-121217

PATIENT
  Age: 78 Year
  Sex: Female

DRUGS (4)
  1. REVATIO [Concomitant]
     Active Substance: SILDENAFIL CITRATE
  2. SILDENAFIL. [Concomitant]
     Active Substance: SILDENAFIL
  3. PRADAXA [Concomitant]
     Active Substance: DABIGATRAN ETEXILATE MESYLATE
  4. MACITENTAN [Suspect]
     Active Substance: MACITENTAN
     Indication: PULMONARY ARTERIAL HYPERTENSION
     Dosage: 10 MG, QD
     Route: 048
     Dates: start: 20150625, end: 20150807

REACTIONS (4)
  - Dyspnoea [Unknown]
  - Malaise [Unknown]
  - Peripheral swelling [Unknown]
  - Asthenia [Unknown]
